FAERS Safety Report 6933261-5 (Version None)
Quarter: 2010Q3

REPORT INFORMATION
  Report Type: 
  Country: None (occurrence: None)
  Receive Date: 20100818
  Receipt Date: 20100818
  Transmission Date: 20110219
  Serious: Yes (Other)
  Sender: FDA-Public Use
  Company Number: None

PATIENT
  Sex: Male

DRUGS (1)
  1. SIMVASTATIN [Suspect]
     Indication: HYPERCHOLESTEROLAEMIA
     Dosage: 40MG QD PO
     Route: 048
     Dates: start: 20100703, end: 20100705

REACTIONS (4)
  - FACE OEDEMA [None]
  - LIP SWELLING [None]
  - SKIN EXFOLIATION [None]
  - SWOLLEN TONGUE [None]
